FAERS Safety Report 5220944-0 (Version None)
Quarter: 2007Q1

REPORT INFORMATION
  Report Type: 
  Country: None (occurrence: None)
  Receive Date: 20070123
  Receipt Date: 20070108
  Transmission Date: 20070707
  Serious: Yes (Hospitalization)
  Sender: FDA-Public Use
  Company Number: 2007BL000047

PATIENT
  Age: 85 Year
  Sex: Female
  Weight: 85 kg

DRUGS (8)
  1. GENTAMICIN SULFATE [Suspect]
     Indication: ENDOCARDITIS BACTERIAL
     Dosage: 160 MILLIGRAMS;TWICE A DAY; INTRAVENOUS; 80 MILLIGRAMS;TWICE A DAY;INTRAVENOUS
     Route: 042
     Dates: start: 20060521, end: 20060530
  2. GENTAMICIN SULFATE [Suspect]
     Indication: ENDOCARDITIS BACTERIAL
     Dosage: 160 MILLIGRAMS;TWICE A DAY; INTRAVENOUS; 80 MILLIGRAMS;TWICE A DAY;INTRAVENOUS
     Route: 042
     Dates: start: 20060530, end: 20060703
  3. AMLODOPINE [Concomitant]
  4. AMOXICILLIN [Concomitant]
  5. ASPIRIN [Concomitant]
  6. EZETIMIBE [Concomitant]
  7. FUROSEMIDE [Concomitant]
  8. SIMVASTATIN [Concomitant]

REACTIONS (1)
  - VESTIBULAR ATAXIA [None]
